FAERS Safety Report 22209233 (Version 3)
Quarter: 2023Q4

REPORT INFORMATION
  Report Type: Spontaneous
  Country: US (occurrence: US)
  Receive Date: 20230413
  Receipt Date: 20231031
  Transmission Date: 20240110
  Serious: Yes (Hospitalization, Other)
  Sender: FDA-Public Use
  Company Number: US-BEH-2023157356

PATIENT
  Age: 22 Year
  Sex: Male

DRUGS (6)
  1. IDELVION [Suspect]
     Active Substance: COAGULATION FACTOR IX RECOMBINANT HUMAN
     Indication: Factor IX deficiency
     Dosage: 2800 INTERNATIONAL UNIT, QW
     Route: 042
     Dates: start: 201906
  2. IDELVION [Suspect]
     Active Substance: COAGULATION FACTOR IX RECOMBINANT HUMAN
     Indication: Factor IX deficiency
     Dosage: 2800 INTERNATIONAL UNIT, QW
     Route: 042
     Dates: start: 201906
  3. IDELVION [Suspect]
     Active Substance: COAGULATION FACTOR IX RECOMBINANT HUMAN
     Indication: Prophylaxis
     Dosage: UNK, PRN, DAILY AS NEEDED
     Route: 042
  4. IDELVION [Suspect]
     Active Substance: COAGULATION FACTOR IX RECOMBINANT HUMAN
     Indication: Prophylaxis
     Dosage: UNK, PRN, DAILY AS NEEDED
     Route: 042
  5. IDELVION [Suspect]
     Active Substance: COAGULATION FACTOR IX RECOMBINANT HUMAN
     Dosage: 2800 INTERNATIONAL UNIT, QW
     Route: 042
     Dates: start: 202105
  6. IDELVION [Suspect]
     Active Substance: COAGULATION FACTOR IX RECOMBINANT HUMAN
     Dosage: 2800 INTERNATIONAL UNIT, QW
     Route: 042
     Dates: start: 202105

REACTIONS (2)
  - Haemorrhage [Unknown]
  - Haemarthrosis [Unknown]

NARRATIVE: CASE EVENT DATE: 20231019
